FAERS Safety Report 7061727-9 (Version None)
Quarter: 2010Q4

REPORT INFORMATION
  Report Type: 
  Country: None (occurrence: None)
  Receive Date: 20101026
  Receipt Date: 20101020
  Transmission Date: 20110411
  Serious: Yes (Hospitalization)
  Sender: FDA-Public Use
  Company Number: RO-ROCHE-720940

PATIENT
  Sex: Female
  Weight: 49 kg

DRUGS (3)
  1. PEGINTERFERON ALFA-2A [Suspect]
     Indication: HEPATITIS C
     Route: 058
     Dates: start: 20091113, end: 20100917
  2. RIBAVIRIN [Suspect]
     Indication: HEPATITIS C
     Route: 048
     Dates: start: 20091113, end: 20100917
  3. ERYTHROPOIETINE [Concomitant]
     Dosage: DOSE: 60000
     Dates: start: 20091204

REACTIONS (2)
  - AUTOIMMUNE HEPATITIS [None]
  - DIABETES MELLITUS [None]
